FAERS Safety Report 6370905-3 (Version None)
Quarter: 2009Q3

REPORT INFORMATION
  Report Type: 
  Country: None (occurrence: None)
  Receive Date: 20090923
  Receipt Date: 20070613
  Transmission Date: 20100115
  Serious: Yes (Hospitalization)
  Sender: FDA-Public Use
  Company Number: US-ASTRAZENECA-2006UW22750

PATIENT
  Sex: Female
  Weight: 96.2 kg

DRUGS (9)
  1. SEROQUEL [Suspect]
     Indication: DEPRESSION
     Route: 048
  2. SEROQUEL [Suspect]
     Dosage: 25 MG TO 250 MG
     Route: 048
     Dates: start: 20040601
  3. GEODON [Concomitant]
     Indication: ANXIETY
     Dates: start: 20070703
  4. ZOLOFT [Concomitant]
     Dosage: 100 MG TO 150 MG
     Dates: start: 20040601
  5. RISPERDAL [Concomitant]
     Dates: start: 20040601
  6. MORPHINE [Concomitant]
     Dates: start: 20070703
  7. XANAX [Concomitant]
     Indication: ANXIETY
     Route: 048
     Dates: start: 20070907
  8. XANAX [Concomitant]
     Indication: SLEEP DISORDER
     Route: 048
     Dates: start: 20070907
  9. METHADONE [Concomitant]
     Dates: start: 20070907

REACTIONS (1)
  - DIABETES MELLITUS [None]
